FAERS Safety Report 7747842-2 (Version None)
Quarter: 2011Q3

REPORT INFORMATION
  Report Type: 
  Country: None (occurrence: None)
  Receive Date: 20110909
  Receipt Date: 20110826
  Transmission Date: 20111222
  Serious: Yes (Hospitalization, Other)
  Sender: FDA-Public Use
  Company Number: 2011AP001809

PATIENT
  Age: 85 Year
  Sex: Male

DRUGS (2)
  1. MIRTAZAPINE [Suspect]
     Indication: DEPRESSION
     Dosage: 15 MG; HS
  2. ROPINIROLE [Concomitant]

REACTIONS (14)
  - BLOOD GLUCOSE INCREASED [None]
  - HALLUCINATION, AUDITORY [None]
  - COGNITIVE DISORDER [None]
  - CONDITION AGGRAVATED [None]
  - CONFUSIONAL STATE [None]
  - AGGRESSION [None]
  - VISUAL ACUITY REDUCED [None]
  - DEHYDRATION [None]
  - DEMENTIA [None]
  - MEAN CELL VOLUME INCREASED [None]
  - HALLUCINATION, VISUAL [None]
  - RESTLESS LEGS SYNDROME [None]
  - SLEEP DISORDER [None]
  - PSYCHOTIC DISORDER [None]
